FAERS Safety Report 5905348-7 (Version None)
Quarter: 2008Q4

REPORT INFORMATION
  Report Type: 
  Country: None (occurrence: None)
  Receive Date: 20081001
  Receipt Date: 20080919
  Transmission Date: 20090506
  Serious: Yes (Hospitalization, Other)
  Sender: FDA-Public Use
  Company Number: JP-PFIZER INC-2008073698

PATIENT
  Sex: Female

DRUGS (21)
  1. ZYVOX [Suspect]
     Indication: STAPHYLOCOCCAL SEPSIS
     Route: 042
     Dates: start: 20080825, end: 20080828
  2. ZYVOX [Suspect]
     Route: 042
     Dates: start: 20080829, end: 20080901
  3. PAXIL [Suspect]
     Indication: DEPRESSION
     Route: 048
     Dates: start: 20080729, end: 20080825
  4. PREDONINE [Suspect]
     Indication: DRUG ERUPTION
     Route: 048
     Dates: start: 20080819, end: 20080829
  5. PREDONINE [Suspect]
     Route: 048
     Dates: start: 20080903
  6. VANCOMYCIN HYDROCHLORIDE [Concomitant]
  7. MEXITIL [Concomitant]
     Route: 048
     Dates: start: 20080719, end: 20080819
  8. LANSOPRAZOLE [Concomitant]
     Route: 048
  9. OPALMON [Concomitant]
     Route: 048
     Dates: end: 20080826
  10. LEVOTHYROXINE SODIUM [Concomitant]
     Route: 048
  11. HYPEN [Concomitant]
     Route: 048
     Dates: end: 20080829
  12. SELBEX [Concomitant]
     Route: 048
     Dates: end: 20080829
  13. VITAMEDIN CAPSULE [Concomitant]
     Route: 048
     Dates: end: 20080824
  14. ALESION [Concomitant]
     Route: 048
     Dates: start: 20080819, end: 20080823
  15. ALOSENN [Concomitant]
     Route: 048
     Dates: end: 20080829
  16. ALENDRONATE SODIUM [Concomitant]
     Route: 048
     Dates: end: 20080829
  17. DIGOXIN [Concomitant]
     Route: 048
     Dates: end: 20080826
  18. CALTAN [Concomitant]
     Route: 048
     Dates: end: 20080826
  19. WARFARIN SODIUM [Concomitant]
     Route: 048
     Dates: end: 20080826
  20. BROTIZOLAM [Concomitant]
     Route: 048
     Dates: end: 20080829
  21. BETAMETHASONE [Concomitant]
     Route: 048
     Dates: end: 20080829

REACTIONS (4)
  - CONVULSION [None]
  - ILLUSION [None]
  - RESTLESSNESS [None]
  - SEROTONIN SYNDROME [None]
